FAERS Safety Report 23277590 (Version 1)
Quarter: 2023Q4

REPORT INFORMATION
  Report Type: Spontaneous
  Country: US (occurrence: None)
  Receive Date: 20231207
  Receipt Date: 20231207
  Transmission Date: 20240109
  Serious: Yes (Other)
  Sender: FDA-Public Use
  Company Number: None

PATIENT
  Age: 20 Year
  Sex: Male
  Weight: 59 kg

DRUGS (1)
  1. FOSAPREPITANT [Suspect]
     Active Substance: FOSAPREPITANT
     Indication: Vomiting
     Dosage: OTHER FREQUENCY : ONCE;?
     Route: 042
     Dates: start: 20230615, end: 20230615

REACTIONS (5)
  - Seizure [None]
  - Loss of consciousness [None]
  - Musculoskeletal stiffness [None]
  - Tremor [None]
  - Therapy cessation [None]

NARRATIVE: CASE EVENT DATE: 20230615
